FAERS Safety Report 9337839 (Version 4)
Quarter: 2013Q3

REPORT INFORMATION
  Report Type: Spontaneous
  Country: US (occurrence: US)
  Receive Date: 20130607
  Receipt Date: 20130806
  Transmission Date: 20140515
  Serious: Yes (Other)
  Sender: FDA-Public Use
  Company Number: US-TEVA-410369USA

PATIENT
  Age: 69 Year
  Sex: Male
  Weight: 79.45 kg

DRUGS (3)
  1. PROAIR HFA [Suspect]
     Indication: BRONCHITIS
     Dates: start: 20130530, end: 20130601
  2. PROAIR HFA [Suspect]
     Indication: SINUSITIS
  3. CORVERT [Concomitant]
     Indication: ATRIAL FIBRILLATION

REACTIONS (3)
  - Respiratory tract infection [Unknown]
  - Abdominal pain upper [Unknown]
  - Incorrect product storage [Unknown]
